FAERS Safety Report 21566969 (Version 1)
Quarter: 2022Q4

REPORT INFORMATION
  Report Type: Report from Study
  Country: JP (occurrence: JP)
  Receive Date: 20221108
  Receipt Date: 20221108
  Transmission Date: 20230113
  Serious: Yes (Hospitalization)
  Sender: FDA-Public Use
  Company Number: JP-Nobelpharma America, LLC-NPC-2021-00359

PATIENT
  Age: 39 Year
  Sex: Male
  Weight: 90 kg

DRUGS (4)
  1. SIROLIMUS [Suspect]
     Active Substance: SIROLIMUS
     Indication: Tuberous sclerosis complex
     Dosage: UNKNOWN
     Route: 003
     Dates: start: 20190704, end: 201908
  2. SIROLIMUS [Suspect]
     Active Substance: SIROLIMUS
     Dosage: UNKNOWN
     Route: 003
     Dates: start: 201908, end: 20190904
  3. SIROLIMUS [Suspect]
     Active Substance: SIROLIMUS
     Dosage: UNKNOWN
     Route: 003
     Dates: start: 20190913, end: 20200607
  4. SIROLIMUS [Suspect]
     Active Substance: SIROLIMUS
     Dosage: UNKNOWN
     Route: 003
     Dates: start: 20200608, end: 20201018

REACTIONS (3)
  - Application site irritation [Recovered/Resolved]
  - Application site dryness [Recovered/Resolved]
  - Angiomyolipoma [Recovered/Resolved]

NARRATIVE: CASE EVENT DATE: 20190808
